FAERS Safety Report 10079438 (Version 5)
Quarter: 2014Q2

REPORT INFORMATION
  Report Type: Report from Study
  Country: DE (occurrence: DE)
  Receive Date: 20140415
  Receipt Date: 20140515
  Transmission Date: 20141212
  Serious: Yes (Hospitalization)
  Sender: FDA-Public Use
  Company Number: PHHO2014DE003930

PATIENT
  Sex: 0

DRUGS (20)
  1. SOM230 [Suspect]
     Indication: ACROMEGALY
     Dosage: DOSE BLINDED
     Route: 030
     Dates: start: 20110221, end: 20110904
  2. SOM230 [Suspect]
     Dosage: EXTENSION PHASE
     Route: 030
     Dates: start: 20110905, end: 20140217
  3. STEROID ANTIBACTERIALS [Suspect]
  4. BLOPRESS [Concomitant]
     Indication: HYPERTENSION
     Dosage: 8 MG, QD
     Route: 048
  5. L-THYROXIN [Concomitant]
     Indication: THYROIDECTOMY
     Dosage: 37.5 UG, QD
     Route: 048
  6. METFORMIN [Concomitant]
     Indication: DIABETES MELLITUS
     Dosage: 100 MG, BID
     Route: 048
     Dates: start: 20131001, end: 20140317
  7. ANTIBIOTICS [Concomitant]
     Indication: INFECTION
     Dates: start: 20140314, end: 20140316
  8. PANTOPRAZOLE ACTAVIS [Concomitant]
     Dosage: 40 MG, QD
  9. COTRIM E ^RATIOPHARM^ [Concomitant]
     Dosage: 480 MG, QD
  10. DECORTIN [Concomitant]
     Dosage: 20 MG, 4-0-0
  11. METOHEXAL [Concomitant]
     Dosage: 47.5 MG, UNK
  12. LANTUS [Concomitant]
     Dosage: 3 ML (16 IE)
  13. GALVUS [Concomitant]
     Dosage: 50 MG, BID
  14. ASS [Concomitant]
     Dosage: 100 MG, QD
  15. CALCIUM [Concomitant]
     Dosage: 500 MG, QD
  16. ISOMIDE//DISOPYRAMIDE [Concomitant]
     Dosage: 300 MG, UNK
  17. VIGANTOLETTEN [Concomitant]
     Dosage: 1000 IE QD
  18. ACTRAPID NOVOLET [Concomitant]
     Dosage: UNK
  19. CANDECOR [Concomitant]
     Dosage: 32 MG, QD
  20. ISOZID [Concomitant]
     Dosage: 300 MG, QD

REACTIONS (6)
  - Glomerulonephritis [Not Recovered/Not Resolved]
  - Anti-neutrophil cytoplasmic antibody positive vasculitis [Not Recovered/Not Resolved]
  - Cardiovascular insufficiency [Recovering/Resolving]
  - Pulmonary embolism [Recovered/Resolved]
  - Gastrointestinal haemorrhage [Recovering/Resolving]
  - Gastric ulcer [Not Recovered/Not Resolved]
